FAERS Safety Report 16051682 (Version 1)
Quarter: 2019Q1

REPORT INFORMATION
  Report Type: Spontaneous
  Country: US (occurrence: US)
  Receive Date: 20190308
  Receipt Date: 20190308
  Transmission Date: 20190418
  Serious: Yes (Hospitalization, Other)
  Sender: FDA-Public Use
  Company Number: US-DSJP-DSU-2017-146310

PATIENT

DRUGS (3)
  1. BENICAR HCT [Suspect]
     Active Substance: HYDROCHLOROTHIAZIDE\OLMESARTAN MEDOXOMIL
     Indication: PRODUCT USED FOR UNKNOWN INDICATION
     Dosage: 20/12.5 MG, QD
     Dates: start: 20080116, end: 20150112
  2. BENICAR [Suspect]
     Active Substance: OLMESARTAN MEDOXOMIL
     Dosage: 40 MG, QD
     Route: 048
     Dates: start: 20080116, end: 20150112
  3. BENICAR [Suspect]
     Active Substance: OLMESARTAN MEDOXOMIL
     Indication: HYPERTENSION
     Dosage: 20 MG, UNK
     Dates: start: 20080116, end: 20150112

REACTIONS (9)
  - Barrett^s oesophagus [Not Recovered/Not Resolved]
  - Acute kidney injury [Unknown]
  - Constipation [Not Recovered/Not Resolved]
  - Diverticulum intestinal [Unknown]
  - Large intestine polyp [Recovered/Resolved]
  - Sprue-like enteropathy [Recovering/Resolving]
  - Hiatus hernia [Unknown]
  - Gastrooesophageal reflux disease [Unknown]
  - Dizziness [Not Recovered/Not Resolved]

NARRATIVE: CASE EVENT DATE: 20090116
